FAERS Safety Report 8273572-7 (Version None)
Quarter: 2012Q2

REPORT INFORMATION
  Report Type: 
  Country: None (occurrence: None)
  Receive Date: 20120411
  Receipt Date: 20120206
  Transmission Date: 20120825
  Serious: Yes (Death)
  Sender: FDA-Public Use
  Company Number: US-TEVA-318452USA

PATIENT
  Sex: Female

DRUGS (2)
  1. NUVIGIL [Suspect]
     Indication: CIRCADIAN RHYTHM SLEEP DISORDER
     Route: 048
     Dates: start: 20110501, end: 20111001
  2. CYMBALTA [Concomitant]
     Route: 048

REACTIONS (1)
  - DEATH [None]
